FAERS Safety Report 9695682 (Version 3)
Quarter: 2013Q4

REPORT INFORMATION
  Report Type: Spontaneous
  Country: US (occurrence: US)
  Receive Date: 20131119
  Receipt Date: 20131226
  Transmission Date: 20140711
  Serious: No
  Sender: FDA-Public Use
  Company Number: US-VERTEX PHARMACEUTICALS INC-2013-011087

PATIENT
  Age: 44 Year
  Sex: Male
  Weight: 90 kg

DRUGS (7)
  1. INCIVEK [Suspect]
     Indication: HEPATITIS C
     Dosage: 750 MG, TID
     Route: 048
     Dates: start: 20131108, end: 20131203
  2. COPEGUS [Suspect]
     Indication: HEPATITIS C
     Dosage: 3 DF, BID
     Dates: start: 20131108, end: 20131203
  3. PEGASYS [Suspect]
     Indication: HEPATITIS C
     Dosage: 180 ?G, QW
     Dates: start: 20131108, end: 20131203
  4. TYLENOL [Concomitant]
  5. MELOXICAM [Concomitant]
     Indication: GASTROOESOPHAGEAL REFLUX DISEASE
  6. MELOXICAM [Concomitant]
     Indication: ANTIINFLAMMATORY THERAPY
  7. LISINOPRIL [Concomitant]
     Indication: BLOOD PRESSURE

REACTIONS (9)
  - Headache [Recovered/Resolved]
  - Mood swings [Recovered/Resolved]
  - Abdominal pain upper [Recovered/Resolved]
  - Haematochezia [Recovered/Resolved]
  - Haemorrhoids [Recovered/Resolved]
  - Proctalgia [Not Recovered/Not Resolved]
  - Rectal haemorrhage [Recovered/Resolved]
  - Anorectal discomfort [Not Recovered/Not Resolved]
  - Nausea [Recovered/Resolved]
